FAERS Safety Report 22304274 (Version 1)
Quarter: 2023Q2

REPORT INFORMATION
  Report Type: Spontaneous
  Country: US (occurrence: US)
  Receive Date: 20230510
  Receipt Date: 20230510
  Transmission Date: 20230722
  Serious: Yes (Other)
  Sender: FDA-Public Use
  Company Number: US-SA-SAC20230509000815

PATIENT
  Sex: Female

DRUGS (1)
  1. DUPIXENT [Suspect]
     Active Substance: DUPILUMAB
     Dosage: 300 MG FREQUENCY: OTHER
     Route: 058

REACTIONS (6)
  - Macular degeneration [Unknown]
  - Dyspnoea [Not Recovered/Not Resolved]
  - Vision blurred [Unknown]
  - Eye irritation [Unknown]
  - Therapeutic product effect incomplete [Unknown]
  - Product administered at inappropriate site [Unknown]
